FAERS Safety Report 5608556-8 (Version None)
Quarter: 2008Q1

REPORT INFORMATION
  Report Type: 
  Country: None (occurrence: None)
  Receive Date: 20080125
  Receipt Date: 20080108
  Transmission Date: 20080703
  Serious: Yes (Hospitalization)
  Sender: FDA-Public Use
  Company Number: 220003J08CAN

PATIENT
  Sex: Male

DRUGS (1)
  1. SAIZEN [Suspect]
     Indication: RENAL FAILURE CHRONIC
     Dosage: 1 IN 1 DAYS
     Dates: start: 20080103

REACTIONS (1)
  - NO ADVERSE EVENT [None]
